FAERS Safety Report 8519453-2 (Version None)
Quarter: 2012Q3

REPORT INFORMATION
  Report Type: 
  Country: None (occurrence: None)
  Receive Date: 20120718
  Receipt Date: 20120712
  Transmission Date: 20120928
  Serious: No
  Sender: FDA-Public Use
  Company Number: US-PFIZER INC-2012169636

PATIENT
  Sex: Female

DRUGS (2)
  1. CEPHALEXIN [Interacting]
     Indication: ACNE
     Dosage: 500 MG, 2X/DAY
     Dates: start: 20120701
  2. DEPO-PROVERA [Suspect]
     Dosage: UNK
     Dates: start: 20120701

REACTIONS (3)
  - SOMNOLENCE [None]
  - DRUG INTERACTION [None]
  - INCREASED APPETITE [None]
